FAERS Safety Report 13978104 (Version 13)
Quarter: 2018Q3

REPORT INFORMATION
  Report Type: Report from Study
  Country: US (occurrence: US)
  Receive Date: 20170915
  Receipt Date: 20180717
  Transmission Date: 20181010
  Serious: Yes (Death, Hospitalization)
  Sender: FDA-Public Use
  Company Number: US-ACTELION-A-NJ2017-155303

PATIENT
  Age: 83 Year
  Sex: Male
  Weight: 65.76 kg

DRUGS (24)
  1. NIFEDIPINE. [Concomitant]
     Active Substance: NIFEDIPINE
  2. LASIX [Concomitant]
     Active Substance: FUROSEMIDE
     Dosage: UNK
     Dates: start: 20170505
  3. UPTRAVI [Suspect]
     Active Substance: SELEXIPAG
     Dosage: 200 MCG, BID
     Route: 048
     Dates: start: 20170518
  4. UPTRAVI [Suspect]
     Active Substance: SELEXIPAG
     Dosage: 1000 MCG, BID
     Route: 048
     Dates: start: 20170911
  5. ALBUTEROL. [Concomitant]
     Active Substance: ALBUTEROL
  6. DORZOLAMIDE [Concomitant]
     Active Substance: DORZOLAMIDE
  7. SENNA LAXATIVE AND DOCUSATE SODIUM [Concomitant]
  8. SPIRONOLACTONE. [Concomitant]
     Active Substance: SPIRONOLACTONE
     Dosage: UNK
     Dates: start: 20180116
  9. OPSUMIT [Suspect]
     Active Substance: MACITENTAN
     Dosage: UNK
     Route: 048
  10. UPTRAVI [Suspect]
     Active Substance: SELEXIPAG
     Dosage: 400 MCG, BID
     Route: 048
     Dates: start: 20170908
  11. UPTRAVI [Suspect]
     Active Substance: SELEXIPAG
     Dosage: 600 MCG, BID
     Route: 048
     Dates: start: 20170909
  12. UPTRAVI [Suspect]
     Active Substance: SELEXIPAG
     Dosage: 1400 MCG, BID
     Route: 048
     Dates: start: 20170913
  13. ADEMPAS [Concomitant]
     Active Substance: RIOCIGUAT
     Dosage: 1MG AM, 0.5 MG AFTERNOON,1 MG PM QD
     Dates: start: 20170418
  14. SIMVASTATIN. [Concomitant]
     Active Substance: SIMVASTATIN
     Dosage: 20 MG, UNK
     Dates: start: 2012
  15. POLYETHYLENE GLYCOL [Concomitant]
     Active Substance: POLYETHYLENE GLYCOLS
  16. MIRTAZAPINE. [Concomitant]
     Active Substance: MIRTAZAPINE
     Dosage: UNK
     Dates: start: 20171215
  17. UPTRAVI [Suspect]
     Active Substance: SELEXIPAG
     Indication: PULMONARY HYPERTENSION
     Dosage: 1600 MCG, BID
     Route: 048
     Dates: start: 20170915
  18. UPTRAVI [Suspect]
     Active Substance: SELEXIPAG
     Dosage: 1200 MCG, BID
     Route: 048
     Dates: start: 20170912
  19. POTASSIUM CHLORIDE. [Concomitant]
     Active Substance: POTASSIUM CHLORIDE
     Dosage: UNK
     Dates: start: 20170505
  20. LATANOPROST. [Concomitant]
     Active Substance: LATANOPROST
  21. UPTRAVI [Suspect]
     Active Substance: SELEXIPAG
     Dosage: 800 MCG, BID
     Route: 048
     Dates: start: 20170910
  22. XARELTO [Concomitant]
     Active Substance: RIVAROXABAN
  23. PROTONIX [Concomitant]
     Active Substance: PANTOPRAZOLE SODIUM
  24. OPSUMIT [Suspect]
     Active Substance: MACITENTAN
     Indication: PULMONARY HYPERTENSION
     Dosage: 10 MG, QD
     Route: 048
     Dates: start: 20170327

REACTIONS (44)
  - Drug administration error [Unknown]
  - Unresponsive to stimuli [Unknown]
  - Oedema [Recovering/Resolving]
  - Dyspnoea [Unknown]
  - Musculoskeletal pain [Unknown]
  - Lung neoplasm [Unknown]
  - Cognitive disorder [Unknown]
  - Weight decreased [Not Recovered/Not Resolved]
  - Cardiogenic shock [Not Recovered/Not Resolved]
  - Rebound effect [Not Recovered/Not Resolved]
  - Pleural neoplasm [Unknown]
  - Myalgia [Unknown]
  - Fatigue [Unknown]
  - Tongue coated [Unknown]
  - Abdominal discomfort [Unknown]
  - Right ventricular failure [Not Recovered/Not Resolved]
  - Fall [Unknown]
  - Dyspnoea exertional [Unknown]
  - Hypotension [Unknown]
  - Decreased appetite [Unknown]
  - Condition aggravated [Unknown]
  - Confusional state [Unknown]
  - Balance disorder [Unknown]
  - Dehydration [Unknown]
  - Pulmonary arterial hypertension [Fatal]
  - Vomiting [Unknown]
  - Pain in extremity [Unknown]
  - Arthritis [Unknown]
  - Abdominal distension [Unknown]
  - Lung adenocarcinoma [Fatal]
  - Blood creatinine increased [Not Recovered/Not Resolved]
  - Ascites [Unknown]
  - Syncope [Unknown]
  - Lymphangiosis carcinomatosa [Unknown]
  - Pathological fracture [Unknown]
  - Transfusion [Unknown]
  - Gait disturbance [Unknown]
  - Rales [Unknown]
  - Oedema peripheral [Unknown]
  - Lethargy [Unknown]
  - Respiratory failure [Unknown]
  - Arthralgia [Unknown]
  - Peripheral swelling [Unknown]
  - Dysgeusia [Unknown]

NARRATIVE: CASE EVENT DATE: 20170907
